FAERS Safety Report 25479105 (Version 1)
Quarter: 2025Q2

REPORT INFORMATION
  Report Type: Spontaneous
  Country: US (occurrence: US)
  Receive Date: 20250625
  Receipt Date: 20250625
  Transmission Date: 20250717
  Serious: Yes (Hospitalization, Other)
  Sender: ABBVIE
  Company Number: US-ABBVIE-6338958

PATIENT
  Sex: Female

DRUGS (2)
  1. BOTOX [Suspect]
     Active Substance: ONABOTULINUMTOXINA
     Indication: Muscle hypertrophy
     Route: 065
     Dates: start: 202504, end: 202504
  2. BOTOX [Suspect]
     Active Substance: ONABOTULINUMTOXINA
     Indication: Muscle hypertrophy
     Route: 065
     Dates: start: 202504, end: 202504

REACTIONS (7)
  - Botulism [Recovering/Resolving]
  - Photophobia [Recovering/Resolving]
  - Facial asymmetry [Recovering/Resolving]
  - Injection site pain [Recovering/Resolving]
  - Anxiety [Recovering/Resolving]
  - Vision blurred [Recovering/Resolving]
  - Dysphagia [Recovering/Resolving]

NARRATIVE: CASE EVENT DATE: 20250401
